FAERS Safety Report 6210670-3 (Version None)
Quarter: 2009Q2

REPORT INFORMATION
  Report Type: 
  Country: None (occurrence: None)
  Receive Date: 20090529
  Receipt Date: 20090529
  Transmission Date: 20091009
  Serious: Yes (Other)
  Sender: FDA-Public Use
  Company Number: None

PATIENT
  Age: 38 Year
  Sex: Female
  Weight: 68.0396 kg

DRUGS (2)
  1. FLUTICASONE PROPIONATE [Suspect]
     Indication: HOUSE DUST ALLERGY
     Dosage: 1-2 SPRAY EACH NOSTRAL AS NEED  2-3 DAILY NASAL
     Route: 045
     Dates: start: 20080801, end: 20080817
  2. FLUTICASONE PROPIONATE [Suspect]
     Indication: MYCOTIC ALLERGY
     Dosage: 1-2 SPRAY EACH NOSTRAL AS NEED  2-3 DAILY NASAL
     Route: 045
     Dates: start: 20080801, end: 20080817

REACTIONS (1)
  - DRUG INEFFECTIVE [None]
